FAERS Safety Report 6796127-X (Version None)
Quarter: 2010Q2

REPORT INFORMATION
  Report Type: 
  Country: None (occurrence: None)
  Receive Date: 20100625
  Receipt Date: 20100617
  Transmission Date: 20101027
  Serious: Yes (Hospitalization, Other)
  Sender: FDA-Public Use
  Company Number: US-ELI_LILLY_AND_COMPANY-US201006004699

PATIENT
  Age: 47 Year
  Sex: Female

DRUGS (3)
  1. BYETTA [Suspect]
     Indication: TYPE 2 DIABETES MELLITUS
     Route: 058
     Dates: start: 20060101, end: 20100601
  2. LANTUS [Concomitant]
  3. SYNTHROID [Concomitant]

REACTIONS (3)
  - GASTROINTESTINAL DISORDER [None]
  - OFF LABEL USE [None]
  - PANCREATITIS [None]
